FAERS Safety Report 23116442 (Version 2)
Quarter: 2024Q1

REPORT INFORMATION
  Report Type: Spontaneous
  Country: US (occurrence: US)
  Receive Date: 20231027
  Receipt Date: 20240109
  Transmission Date: 20240410
  Serious: Yes (Death)
  Sender: FDA-Public Use
  Company Number: US-PFIZER INC-202101266941

PATIENT
  Age: 84 Year
  Sex: Male
  Weight: 76.281 kg

DRUGS (10)
  1. VYNDAMAX [Suspect]
     Active Substance: TAFAMIDIS
     Indication: Amyloidosis
     Dosage: 80 MG, DAILY (20MG 4 CAPS DAILY)
  2. VYNDAMAX [Suspect]
     Active Substance: TAFAMIDIS
     Dosage: 61 MG
  3. VYNDAMAX [Suspect]
     Active Substance: TAFAMIDIS
     Dosage: 20 MG, DAILY
     Dates: start: 202110, end: 20230929
  4. AMIODARONE [Concomitant]
     Active Substance: AMIODARONE
     Dosage: 500 MG, 2X/DAY
  5. BUMETANIDE [Concomitant]
     Active Substance: BUMETANIDE
     Dosage: 1 MG, 3X/DAY
  6. MIRTAZAPINE [Concomitant]
     Active Substance: MIRTAZAPINE
     Dosage: 7 MG, DAILY
  7. POTASSIUM [Concomitant]
     Active Substance: POTASSIUM
     Dosage: 20 UG, 3X/DAY
  8. XARELTO [Concomitant]
     Active Substance: RIVAROXABAN
     Dosage: 15 MG
  9. ONDANSETRON [Concomitant]
     Active Substance: ONDANSETRON
     Dosage: 4 MG, 2X/DAY
  10. MILRINONE [Concomitant]
     Active Substance: MILRINONE
     Dosage: 40 MG [40 MG ON IN 200 ML]

REACTIONS (2)
  - Amyloidosis [Fatal]
  - Off label use [Unknown]

NARRATIVE: CASE EVENT DATE: 20231003
